FAERS Safety Report 4365093-9 (Version None)
Quarter: 2004Q2

REPORT INFORMATION
  Report Type: 
  Country: None (occurrence: None)
  Receive Date: 20040521
  Receipt Date: 20040308
  Transmission Date: 20050107
  Serious: Yes (Death, Hospitalization)
  Sender: FDA-Public Use
  Company Number: 510#5#2003-30642

PATIENT
  Age: 78 Year
  Sex: Female

DRUGS (23)
  1. LIDOCAINE [Suspect]
     Indication: POST HERPETIC NEURALGIA
     Dosage: TOP
     Route: 061
     Dates: start: 20030920, end: 20031113
  2. LIDOCAINE [Suspect]
     Indication: POST HERPETIC NEURALGIA
     Dosage: TOP
     Route: 061
     Dates: start: 20031113, end: 20031216
  3. LIDOCAINE [Suspect]
     Indication: POST HERPETIC NEURALGIA
     Dosage: TOP
     Route: 061
     Dates: start: 20040103, end: 20040108
  4. AMLODIPINE [Concomitant]
  5. TERBUTALINE SULFATE [Concomitant]
  6. BECLOMETHASONE DIPROPIONATE [Concomitant]
  7. VITAMIN B COMPLEX CAP [Concomitant]
  8. MIXTARD HUMAN (INSULIN HUMAN) [Concomitant]
  9. AMLODIPINE [Concomitant]
  10. TERBUTALINE SULFATE [Concomitant]
  11. BECLOMETHASONE DIPROPIONATE [Concomitant]
  12. VITAMIN B COMPLEX CAP [Concomitant]
  13. MIXTARD HUMAN (INSULIN HUMAN) [Concomitant]
  14. ATORVASTATIN (ATORVASTATIN) [Concomitant]
  15. ENALAPRIL MALEATE [Concomitant]
  16. FRUSEMIDE (FRUSEMIDE) [Concomitant]
  17. COMBIVENT [Concomitant]
  18. BECOTIDE (BECLOMETASONE DIPROPIONATE) [Concomitant]
  19. ERYTHROMYCIN [Concomitant]
  20. CEFUROXIME [Concomitant]
  21. PREDNISOLONE [Concomitant]
  22. CO-PROXAMAL (DEXTROPROPOXYPHENE HYDROCHLORIDE, PARACETAMOL) [Concomitant]
  23. FLUVIRIN (INFLUENZA VIRUS VACINE POLYVALENT) [Concomitant]

REACTIONS (13)
  - ANXIETY [None]
  - ASTHMA [None]
  - BLOOD GLUCOSE INCREASED [None]
  - C-REACTIVE PROTEIN INCREASED [None]
  - CARDIAC FAILURE CONGESTIVE [None]
  - CONFUSIONAL STATE [None]
  - CORONARY ARTERY ATHEROSCLEROSIS [None]
  - FEAR [None]
  - HYPOXIA [None]
  - MYOCARDIAL INFARCTION [None]
  - MYOCARDIAL ISCHAEMIA [None]
  - NEUTROPHILIA [None]
  - PNEUMONIA [None]
